FAERS Safety Report 4899126-8 (Version None)
Quarter: 2006Q1

REPORT INFORMATION
  Report Type: 
  Country: None (occurrence: None)
  Receive Date: 20060126
  Receipt Date: 20060112
  Transmission Date: 20060701
  Serious: Yes (Other)
  Sender: FDA-Public Use
  Company Number: 2006BH000682

PATIENT
  Age: 46 Year
  Sex: Female

DRUGS (1)
  1. IMMUNE GLOBULIN INTRAVENOUS (HUMAN) [Suspect]
     Indication: GUILLAIN-BARRE SYNDROME
     Dosage: 0.4 G/KG; EVERY DAY; IV
     Route: 042

REACTIONS (4)
  - CEREBRAL ISCHAEMIA [None]
  - ENCEPHALOPATHY [None]
  - POLYNEUROPATHY [None]
  - RADICULOPATHY [None]
